FAERS Safety Report 9419896 (Version 2)
Quarter: 2013Q3

REPORT INFORMATION
  Report Type: Spontaneous
  Country: US (occurrence: US)
  Receive Date: 20130725
  Receipt Date: 20130822
  Transmission Date: 20140515
  Serious: Yes (Death, Hospitalization)
  Sender: FDA-Public Use
  Company Number: US-GILEAD-2013-0079936

PATIENT
  Sex: Male

DRUGS (3)
  1. LETAIRIS [Suspect]
     Indication: PRODUCT USED FOR UNKNOWN INDICATION
     Dosage: 5 MG, QD
     Route: 048
  2. REVATIO [Concomitant]
  3. COUMADIN                           /00014802/ [Concomitant]

REACTIONS (8)
  - Mitral valve incompetence [Fatal]
  - Cardiac failure [Fatal]
  - Coronary artery disease [Fatal]
  - Pulmonary hypertension [Fatal]
  - Generalised oedema [Unknown]
  - Dyspnoea [Unknown]
  - Oedema peripheral [Unknown]
  - Fatigue [Unknown]
